FAERS Safety Report 8464063-9 (Version None)
Quarter: 2012Q2

REPORT INFORMATION
  Report Type: 
  Country: None (occurrence: None)
  Receive Date: 20120625
  Receipt Date: 20120618
  Transmission Date: 20120825
  Serious: Yes (Hospitalization, Other)
  Sender: FDA-Public Use
  Company Number: BR-ROCHE-759859

PATIENT
  Sex: Female
  Weight: 57 kg

DRUGS (13)
  1. CALCIUM [Concomitant]
  2. DOXYCYCLINE [Concomitant]
  3. MABTHERA [Suspect]
     Indication: SYSTEMIC LUPUS ERYTHEMATOSUS
     Dosage: ADDITIONAL INDICATION: RHUEMATOID ARTHRITIS
     Route: 042
  4. OMEPRAZOLE [Concomitant]
  5. CIPROFIBRATO [Concomitant]
  6. VALPROIC ACID [Concomitant]
     Indication: CONVULSION
  7. FOLIC ACID [Concomitant]
  8. PREDNISONE [Concomitant]
  9. IMIPRAMINE HCL [Concomitant]
     Indication: ANXIETY
  10. MABTHERA [Suspect]
     Dosage: ADDITIONAL INDICATION: RHUEMATOID ARTHRITIS
     Route: 042
  11. DIAZEPAM [Concomitant]
     Indication: CONVULSION
  12. MABTHERA [Suspect]
     Dosage: ADDITIONAL INDICATION: RHUEMATOID ARTHRITIS
     Route: 042
  13. ANALGESIC NOS [Concomitant]
     Indication: PAIN

REACTIONS (8)
  - INCISION SITE PAIN [None]
  - WEIGHT INCREASED [None]
  - DECUBITUS ULCER [None]
  - SYSTEMIC LUPUS ERYTHEMATOSUS [None]
  - IMMUNODEFICIENCY [None]
  - ACTIVITIES OF DAILY LIVING IMPAIRED [None]
  - ARTHRITIS BACTERIAL [None]
  - HERPES VIRUS INFECTION [None]
